FAERS Safety Report 13988451 (Version 1)
Quarter: 2017Q3

REPORT INFORMATION
  Report Type: Spontaneous
  Country: AU (occurrence: AU)
  Receive Date: 20170919
  Receipt Date: 20170919
  Transmission Date: 20171128
  Serious: Yes (Other)
  Sender: FDA-Public Use
  Company Number: AU-PFIZER INC-2017401118

PATIENT
  Age: 48 Year
  Sex: Male

DRUGS (3)
  1. GENTAMICIN SULFATE. [Suspect]
     Active Substance: GENTAMICIN SULFATE
     Indication: ENTEROBACTER INFECTION
     Dosage: UNK
  2. CLAVULANIC ACID W/TICARCILLIN [Suspect]
     Active Substance: CLAVULANIC ACID\TICARCILLIN
     Indication: ENTEROBACTER INFECTION
     Dosage: 3.1 G, 4X/DAY
  3. VANCOMYCIN HCL [Suspect]
     Active Substance: VANCOMYCIN HYDROCHLORIDE
     Indication: ENTEROBACTER INFECTION
     Dosage: UNK

REACTIONS (2)
  - Pyrexia [Recovered/Resolved]
  - Sepsis [Recovering/Resolving]
